FAERS Safety Report 19159026 (Version 2)
Quarter: 2021Q2

REPORT INFORMATION
  Report Type: Spontaneous
  Country: GB (occurrence: GB)
  Receive Date: 20210420
  Receipt Date: 20210422
  Transmission Date: 20210717
  Serious: Yes (Hospitalization, Other)
  Sender: FDA-Public Use
  Company Number: GB-PFIZER INC-2021319582

PATIENT
  Age: 48 Year
  Sex: Female
  Weight: 51.4 kg

DRUGS (16)
  1. CARBOPLATIN. [Suspect]
     Active Substance: CARBOPLATIN
     Indication: OVARIAN CANCER
     Dosage: CYCLIC (FIRST 3 CYCLES; CARBOPLATIN + 5% GLUCOSE)
     Route: 065
  2. GLUCOSE INTRAVENOUS [Suspect]
     Active Substance: ANHYDROUS DEXTROSE
     Dosage: UNK (FIRST 3 CYCLES; CAELYX + 5% GLUCOSE)
  3. DEXAMETHASONE. [Suspect]
     Active Substance: DEXAMETHASONE
     Indication: NAUSEA
     Dosage: 4 MG, 2X/DAY
     Route: 048
     Dates: start: 20210220, end: 20210221
  4. CARBOPLATIN. [Suspect]
     Active Substance: CARBOPLATIN
     Dosage: 450 MG, CYCLIC (4TH CYCLE; CARBOPLATIN 450 MG + 5% GLUCOSE 545 ML GIVEN OVER 1 HOUR)
     Route: 065
     Dates: start: 20210219
  5. ONDANSETRON HYDROCHLORIDE. [Suspect]
     Active Substance: ONDANSETRON HYDROCHLORIDE
     Indication: NAUSEA
     Dosage: 8 MG, 2X/DAY
     Route: 048
     Dates: start: 20210220, end: 20210221
  6. PARACETAMOL [Concomitant]
     Active Substance: ACETAMINOPHEN
     Indication: PAIN
     Dosage: 500 MG?1 G UPTO FOUR TIMES A DAY, AS REQUIRED; NOT KNOWN? LONG TERM
     Route: 048
  7. GLUCOSE INTRAVENOUS [Suspect]
     Active Substance: ANHYDROUS DEXTROSE
     Indication: MEDICATION DILUTION
     Dosage: UNK (FIRST 3 CYCLES; CARBOPLATIN + 5% GLUCOSE)
     Route: 065
  8. DEXAMETHASONE. [Suspect]
     Active Substance: DEXAMETHASONE
     Indication: VOMITING
     Dosage: UNK
  9. METOCLOPRAMIDE. [Suspect]
     Active Substance: METOCLOPRAMIDE
     Indication: VOMITING
  10. TOZINAMERAN. [Concomitant]
     Active Substance: TOZINAMERAN
     Indication: COVID-19 IMMUNISATION
     Dosage: SINGLE DOSE
     Route: 030
     Dates: start: 20210221, end: 20210221
  11. DOXIL [Suspect]
     Active Substance: DOXORUBICIN HYDROCHLORIDE
     Dosage: 50 MG, CYCLIC (4TH CYCLE; CAELYX 50 MG + 5% GLUCOSE 250 ML OVER 1 HOUR) 50MG / 25ML
     Route: 065
     Dates: start: 20210219
  12. GLUCOSE INTRAVENOUS [Suspect]
     Active Substance: ANHYDROUS DEXTROSE
     Dosage: 250 ML (4TH CYCLE; CAELYX 50 MG + 5% GLUCOSE 250 ML OVER 1 HOUR)
     Route: 065
     Dates: start: 20210219
  13. GLUCOSE INTRAVENOUS [Suspect]
     Active Substance: ANHYDROUS DEXTROSE
     Dosage: 545ML 4TH CYCLE; CARBOPLATIN 450 MG + 5% GLUCOSE 545 ML OVER 1 HOUR
     Dates: start: 20210219
  14. ONDANSETRON HYDROCHLORIDE. [Suspect]
     Active Substance: ONDANSETRON HYDROCHLORIDE
     Indication: VOMITING
  15. DOXIL [Suspect]
     Active Substance: DOXORUBICIN HYDROCHLORIDE
     Indication: OVARIAN CANCER
     Dosage: CYCLIC (FIRST 3 CYCLES; CAELYX + 5% GLUCOSE) STRENGTH 50MG / 25ML
     Route: 065
  16. METOCLOPRAMIDE. [Suspect]
     Active Substance: METOCLOPRAMIDE
     Indication: NAUSEA
     Dosage: 10 MG, 3X/DAY; UPTO 3 TIMES A DAY, AS REQUIRED
     Route: 048
     Dates: start: 20201113

REACTIONS (8)
  - Vitamin B12 deficiency [Unknown]
  - Neutropenic sepsis [Recovering/Resolving]
  - Pancytopenia [Recovering/Resolving]
  - Mouth ulceration [Unknown]
  - Folate deficiency [Unknown]
  - Myelosuppression [Unknown]
  - Anaemia [Unknown]
  - Thrombocytopenia [Unknown]

NARRATIVE: CASE EVENT DATE: 202103
